FAERS Safety Report 25506851 (Version 1)
Quarter: 2025Q3

REPORT INFORMATION
  Report Type: Spontaneous
  Country: US (occurrence: US)
  Receive Date: 20250702
  Receipt Date: 20250702
  Transmission Date: 20251020
  Serious: No
  Sender: RADIUS PHARM
  Company Number: US-RADIUS HEALTH INC.-US-RADIUS-25046199

PATIENT
  Sex: Female

DRUGS (1)
  1. TYMLOS [Suspect]
     Active Substance: ABALOPARATIDE
     Indication: Senile osteoporosis
     Dosage: 80 MICROGRAM, QD
     Route: 058

REACTIONS (8)
  - Muscular weakness [Unknown]
  - Nervousness [Unknown]
  - Blood pressure abnormal [Unknown]
  - Injection site pain [Unknown]
  - Heart rate increased [Unknown]
  - Injury associated with device [Unknown]
  - Product administration error [Unknown]
  - Device use issue [Unknown]
